FAERS Safety Report 8069372-3 (Version None)
Quarter: 2012Q1

REPORT INFORMATION
  Report Type: 
  Country: None (occurrence: None)
  Receive Date: 20120125
  Receipt Date: 20120113
  Transmission Date: 20120608
  Serious: Yes (Other)
  Sender: FDA-Public Use
  Company Number: US-JNJFOC-20120105415

PATIENT
  Sex: Female
  Weight: 81.65 kg

DRUGS (6)
  1. REMICADE [Suspect]
     Route: 042
     Dates: start: 20090101
  2. BENADRYL [Suspect]
     Indication: PREMEDICATION
     Route: 048
     Dates: start: 20110101
  3. VITAMIN B-12 [Concomitant]
     Route: 058
  4. LORAZEPAM [Concomitant]
     Indication: SLEEP DISORDER
     Route: 048
  5. REMICADE [Suspect]
     Indication: CROHN'S DISEASE
     Route: 042
     Dates: start: 20120109
  6. LEXAPRO [Concomitant]
     Indication: DEPRESSION
     Route: 048

REACTIONS (6)
  - RASH [None]
  - SOMNOLENCE [None]
  - INFUSION RELATED REACTION [None]
  - PRURITUS [None]
  - RESTLESS LEGS SYNDROME [None]
  - CHEST PAIN [None]
